FAERS Safety Report 8961009 (Version 1)
Quarter: 2012Q4

REPORT INFORMATION
  Report Type: 
  Country: JP (occurrence: JP)
  Receive Date: 20121212
  Receipt Date: 20121212
  Transmission Date: 20130627
  Serious: Yes (Other)
  Sender: FDA-Public Use
  Company Number: JP-MYLANLABS-2012S1024944

PATIENT
  Age: 0 None
  Sex: Female

DRUGS (3)
  1. TETRACOSACTIDE [Suspect]
     Indication: INFANTILE SPASMS
     Dosage: 0.0050 mg/kg for 16 days
     Route: 065
  2. SODIUM VALPROATE [Concomitant]
     Route: 065
  3. ZONISAMIDE [Concomitant]
     Route: 065

REACTIONS (5)
  - Varicella [Not Recovered/Not Resolved]
  - Multi-organ failure [Fatal]
  - Disseminated intravascular coagulation [Not Recovered/Not Resolved]
  - Shock haemorrhagic [Not Recovered/Not Resolved]
  - Respiratory failure [Unknown]
